FAERS Safety Report 19611299 (Version 1)
Quarter: 2021Q3

REPORT INFORMATION
  Report Type: Spontaneous
  Country: US (occurrence: US)
  Receive Date: 20210726
  Receipt Date: 20210726
  Transmission Date: 20211014
  Serious: No
  Sender: FDA-Public Use
  Company Number: US-ENDO PHARMACEUTICALS INC-2020-006152

PATIENT
  Sex: Male
  Weight: 180 kg

DRUGS (12)
  1. EDEX [Suspect]
     Active Substance: ALPROSTADIL
     Dosage: 40 MCG UNKNOWN, UNKNOWN
     Route: 065
     Dates: start: 2020
  2. EDEX [Suspect]
     Active Substance: ALPROSTADIL
     Indication: ERECTILE DYSFUNCTION
     Dosage: 20 MCG UNKNOWN, UNKNOWN
     Route: 065
     Dates: start: 2020
  3. EDEX [Suspect]
     Active Substance: ALPROSTADIL
     Dosage: 40 MCG UNKNOWN, UNKNOWN
     Route: 065
     Dates: start: 2020
  4. EDEX [Suspect]
     Active Substance: ALPROSTADIL
     Dosage: 40 MCG UNKNOWN, UNKNOWN
     Route: 065
     Dates: start: 2020
  5. EDEX [Suspect]
     Active Substance: ALPROSTADIL
     Dosage: 40 MCG UNKNOWN, UNKNOWN
     Route: 065
     Dates: start: 2020
  6. EDEX [Suspect]
     Active Substance: ALPROSTADIL
     Dosage: 40 MCG UNKNOWN, UNKNOWN
     Route: 065
     Dates: start: 2020
  7. EDEX [Suspect]
     Active Substance: ALPROSTADIL
     Dosage: 40 MCG UNKNOWN, UNKNOWN
     Route: 065
     Dates: start: 2020
  8. EDEX [Suspect]
     Active Substance: ALPROSTADIL
     Dosage: 40 MCG UNKNOWN, UNKNOWN
     Route: 065
     Dates: start: 2020
  9. EDEX [Suspect]
     Active Substance: ALPROSTADIL
     Indication: ERECTILE DYSFUNCTION
     Dosage: 20 MCG UNKNOWN, UNKNOWN
     Route: 065
     Dates: start: 2020
  10. EDEX [Suspect]
     Active Substance: ALPROSTADIL
     Indication: ERECTILE DYSFUNCTION
     Dosage: 20 MCG UNKNOWN, UNKNOWN
     Route: 065
     Dates: start: 2020
  11. EDEX [Suspect]
     Active Substance: ALPROSTADIL
     Dosage: 40 MCG UNKNOWN, UNKNOWN
     Route: 065
     Dates: start: 2020
  12. EDEX [Suspect]
     Active Substance: ALPROSTADIL
     Dosage: 40 MCG UNKNOWN, UNKNOWN
     Route: 065
     Dates: start: 2020

REACTIONS (1)
  - Drug ineffective [Unknown]

NARRATIVE: CASE EVENT DATE: 2020
